FAERS Safety Report 9682210 (Version 2)
Quarter: 2013Q4

REPORT INFORMATION
  Report Type: Spontaneous
  Country: US (occurrence: US)
  Receive Date: 20131111
  Receipt Date: 20131210
  Transmission Date: 20140711
  Serious: Yes (Death)
  Sender: FDA-Public Use
  Company Number: US-ROCHE-1302535

PATIENT
  Sex: Female
  Weight: 48.35 kg

DRUGS (5)
  1. AVASTIN [Suspect]
     Indication: COLON CANCER
     Route: 042
     Dates: start: 20090810, end: 20130730
  2. OXALIPLATIN [Concomitant]
     Indication: COLON CANCER METASTATIC
     Route: 042
     Dates: start: 20130716, end: 20130730
  3. LEUCOVORIN [Concomitant]
     Indication: COLON CANCER METASTATIC
     Route: 042
     Dates: start: 20130129, end: 20130730
  4. 5-FU [Concomitant]
     Indication: COLON CANCER METASTATIC
     Route: 042
     Dates: start: 20090810, end: 20130801
  5. 5-FU [Concomitant]
     Route: 065
     Dates: start: 20090810, end: 20130801

REACTIONS (1)
  - Disease progression [Fatal]
